FAERS Safety Report 22204165 (Version 2)
Quarter: 2023Q2

REPORT INFORMATION
  Report Type: Spontaneous
  Country: US (occurrence: US)
  Receive Date: 20230412
  Receipt Date: 20230608
  Transmission Date: 20230722
  Serious: Yes (Other)
  Sender: FDA-Public Use
  Company Number: US-PFIZER INC-PV202300065354

PATIENT
  Age: 72 Year
  Sex: Female

DRUGS (1)
  1. IBRANCE [Suspect]
     Active Substance: PALBOCICLIB
     Dosage: UNK

REACTIONS (7)
  - Thrombosis [Unknown]
  - Fatigue [Unknown]
  - Peripheral swelling [Unknown]
  - Back pain [Unknown]
  - Blood glucose increased [Unknown]
  - Epistaxis [Unknown]
  - Insomnia [Unknown]
